FAERS Safety Report 10478759 (Version 1)
Quarter: 2014Q3

REPORT INFORMATION
  Report Type: Spontaneous
  Country: US (occurrence: US)
  Receive Date: 20140926
  Receipt Date: 20140926
  Transmission Date: 20150326
  Serious: Yes (Other)
  Sender: FDA-Public Use
  Company Number: US-PFIZER INC-2014264852

PATIENT
  Age: 82 Year
  Sex: Female
  Weight: 72.56 kg

DRUGS (1)
  1. CELEBREX [Suspect]
     Active Substance: CELECOXIB
     Indication: ARTHRALGIA
     Dosage: UNK
     Route: 048

REACTIONS (5)
  - Neoplasm malignant [Unknown]
  - Spinal column stenosis [Unknown]
  - Osteoporosis [Unknown]
  - Hypertension [Unknown]
  - Blood cholesterol increased [Unknown]
